FAERS Safety Report 10304990 (Version 1)
Quarter: 2014Q3

REPORT INFORMATION
  Report Type: Spontaneous
  Country: FR (occurrence: None)
  Receive Date: 20140710
  Receipt Date: 20140710
  Transmission Date: 20150326
  Serious: Yes (Hospitalization, Other)
  Sender: FDA-Public Use
  Company Number: 2014AMD00031

PATIENT
  Age: 37 Year
  Sex: Female

DRUGS (4)
  1. EPINEPHRINE. [Suspect]
     Active Substance: EPINEPHRINE
     Indication: HYPERSENSITIVITY
     Route: 042
  2. PREDNISOLONE (PREDNISOLONE) [Concomitant]
     Active Substance: PREDNISOLONE
  3. BUDESONIDE (BUDESONIDE) [Concomitant]
     Active Substance: BUDESONIDE
  4. NEO-MERCAZOLE (PROPANOLOL) [Concomitant]

REACTIONS (21)
  - Acute respiratory failure [None]
  - Diarrhoea [None]
  - Vomiting [None]
  - Tachypnoea [None]
  - Cardiac failure congestive [None]
  - Agitation [None]
  - Crepitations [None]
  - Laryngeal discomfort [None]
  - Heart rate increased [None]
  - Subendocardial ischaemia [None]
  - Stress cardiomyopathy [None]
  - Headache [None]
  - Chest discomfort [None]
  - Hyperglycaemia [None]
  - Hepatocellular injury [None]
  - Leukostasis syndrome [None]
  - Dyspnoea [None]
  - Drug administration error [None]
  - Cough [None]
  - Sputum discoloured [None]
  - Blood pressure increased [None]
